FAERS Safety Report 21558858 (Version 2)
Quarter: 2023Q1

REPORT INFORMATION
  Report Type: Spontaneous
  Country: CA (occurrence: CA)
  Receive Date: 20221107
  Receipt Date: 20230131
  Transmission Date: 20230418
  Serious: Yes (Other)
  Sender: FDA-Public Use
  Company Number: CA-TAKEDA-2022TUS049594

PATIENT
  Age: 75 Year
  Sex: Female
  Weight: 55.329 kg

DRUGS (4)
  1. NINLARO [Suspect]
     Active Substance: IXAZOMIB CITRATE
     Indication: Plasma cell myeloma
     Dosage: 2.3 MILLIGRAM
     Route: 065
     Dates: start: 20220419
  2. NINLARO [Suspect]
     Active Substance: IXAZOMIB CITRATE
     Indication: Leukaemia
     Dosage: 3 MILLIGRAM
     Route: 065
  3. ACYCLOVIR [Concomitant]
     Active Substance: ACYCLOVIR
     Dosage: UNK
     Route: 065
  4. SYNTHROID [Concomitant]
     Active Substance: LEVOTHYROXINE SODIUM
     Dosage: UNK
     Route: 065

REACTIONS (4)
  - Immunodeficiency [Unknown]
  - Neuropathy peripheral [Recovered/Resolved]
  - Body height decreased [Unknown]
  - Off label use [Unknown]
